FAERS Safety Report 13449988 (Version 1)
Quarter: 2017Q2

REPORT INFORMATION
  Report Type: Spontaneous
  Country: US (occurrence: US)
  Receive Date: 20170417
  Receipt Date: 20170417
  Transmission Date: 20170830
  Serious: No
  Sender: FDA-Public Use
  Company Number: US-BION-20160442

PATIENT
  Age: 63 Year
  Weight: 139.25 kg

DRUGS (2)
  1. ALEVE DIRECT THERAPY (TENS) [Suspect]
     Active Substance: DEVICE
     Indication: BACK PAIN
     Dates: start: 20160818, end: 20160818
  2. ALEVE [Suspect]
     Active Substance: NAPROXEN SODIUM
     Indication: BACK PAIN
     Dosage: 2 DF QD
     Route: 048

REACTIONS (3)
  - Drug prescribing error [Unknown]
  - Incorrect drug administration duration [Unknown]
  - Product adhesion issue [Unknown]

NARRATIVE: CASE EVENT DATE: 2016
